FAERS Safety Report 10269147 (Version 1)
Quarter: 2014Q2

REPORT INFORMATION
  Report Type: Report from Study
  Country: BR (occurrence: BR)
  Receive Date: 20140630
  Receipt Date: 20140630
  Transmission Date: 20141212
  Serious: Yes (Hospitalization, Other)
  Sender: FDA-Public Use
  Company Number: BR-ABBVIE-14P-020-1250613-00

PATIENT
  Age: 55 Year
  Sex: Male
  Weight: 80 kg

DRUGS (6)
  1. HUMIRA [Suspect]
     Indication: RHEUMATOID ARTHRITIS
     Route: 058
     Dates: start: 2012
  2. UNSPECIFIED CORTICOID [Suspect]
     Indication: PAIN
  3. METHOTREXATE [Concomitant]
     Indication: ARTHRITIS
     Route: 048
     Dates: start: 2007, end: 2012
  4. ALOPURINOL [Concomitant]
     Indication: ARTHRITIS
     Route: 048
     Dates: start: 2011
  5. LEVOTHYROXINE [Concomitant]
     Indication: THYROID DISORDER
     Route: 048
     Dates: start: 2000
  6. LOSARTAN [Concomitant]
     Indication: HYPERTENSION
     Route: 048
     Dates: start: 2000

REACTIONS (19)
  - Blindness [Recovering/Resolving]
  - Dengue fever [Unknown]
  - Thrombosis [Recovering/Resolving]
  - Diabetes mellitus [Not Recovered/Not Resolved]
  - Pancreatic disorder [Recovered/Resolved]
  - Hepatic lesion [Recovered/Resolved]
  - Renal disorder [Recovered/Resolved]
  - Pain [Recovered/Resolved]
  - Muscular weakness [Recovering/Resolving]
  - Somnolence [Recovering/Resolving]
  - Weight decreased [Recovering/Resolving]
  - Blood triglycerides increased [Unknown]
  - Blood cholesterol increased [Unknown]
  - Blood glucose increased [Recovering/Resolving]
  - Musculoskeletal pain [Unknown]
  - Arthralgia [Unknown]
  - Nodule [Unknown]
  - Joint range of motion decreased [Unknown]
  - Drug ineffective [Unknown]
